FAERS Safety Report 8844093 (Version 1)
Quarter: 2012Q4

REPORT INFORMATION
  Report Type: Report from Study
  Country: US (occurrence: US)
  Receive Date: 20121016
  Receipt Date: 20121016
  Transmission Date: 20130627
  Serious: Yes (Other)
  Sender: FDA-Public Use
  Company Number: US-PFIZER INC-2012250523

PATIENT
  Age: 12 Month

DRUGS (1)
  1. PROPANOLOL HCL [Suspect]
     Indication: PHACES SYNDROME
     Dosage: 1.5 mg/kg/day divided tid
     Route: 048

REACTIONS (1)
  - Skin ulcer [Recovered/Resolved]
